FAERS Safety Report 6390902-1 (Version None)
Quarter: 2009Q4

REPORT INFORMATION
  Report Type: 
  Country: None (occurrence: None)
  Receive Date: 20091006
  Receipt Date: 20090928
  Transmission Date: 20100525
  Serious: Yes (Hospitalization)
  Sender: FDA-Public Use
  Company Number: DE-MERCK-0909DEU00029

PATIENT
  Age: 75 Year
  Sex: Male

DRUGS (2)
  1. ZOCOR [Suspect]
     Route: 048
     Dates: start: 20000101, end: 20090101
  2. ZOCOR [Suspect]
     Route: 048
     Dates: start: 20090101

REACTIONS (2)
  - ADVERSE EVENT [None]
  - MUSCULOSKELETAL PAIN [None]
